FAERS Safety Report 4739036-X (Version None)
Quarter: 2005Q3

REPORT INFORMATION
  Report Type: 
  Country: None (occurrence: None)
  Receive Date: 20050801
  Receipt Date: 20050309
  Transmission Date: 20060218
  Serious: Yes (Hospitalization, Other)
  Sender: FDA-Public Use
  Company Number: 211718

PATIENT
  Age: 80 Year
  Sex: Male

DRUGS (3)
  1. RITUXAN [Suspect]
     Dosage: INTRAVENOUS
     Route: 042
  2. FLUDARABINE PHOSPHATE [Suspect]
  3. CYTOXAN [Suspect]

REACTIONS (2)
  - TUMOUR LYSIS SYNDROME [None]
  - WHITE BLOOD CELL COUNT INCREASED [None]
